FAERS Safety Report 10175104 (Version 3)
Quarter: 2014Q2

REPORT INFORMATION
  Report Type: Spontaneous
  Country: US (occurrence: US)
  Receive Date: 20140515
  Receipt Date: 20140620
  Transmission Date: 20141212
  Serious: Yes (Other)
  Sender: FDA-Public Use
  Company Number: US-TARO-2014P1003972

PATIENT
  Age: 23 Year
  Sex: Male
  Weight: 86.18 kg

DRUGS (1)
  1. PHENYTOIN SODIUM EXTENDED CAPSULES USP 100MG [Suspect]
     Indication: CONVULSION
     Route: 048
     Dates: start: 201312

REACTIONS (5)
  - Generalised tonic-clonic seizure [Recovered/Resolved]
  - Anticonvulsant drug level decreased [Unknown]
  - Product quality issue [Unknown]
  - Drug ineffective [Unknown]
  - Nausea [Unknown]
